FAERS Safety Report 18129220 (Version 1)
Quarter: 2020Q3

REPORT INFORMATION
  Report Type: Spontaneous
  Country: CA (occurrence: CA)
  Receive Date: 20200810
  Receipt Date: 20200810
  Transmission Date: 20201103
  Serious: Yes (Congenital Anomaly)
  Sender: FDA-Public Use
  Company Number: CA-ACCORD-194784

PATIENT
  Age: 38 Year
  Sex: Female
  Weight: 114 kg

DRUGS (11)
  1. MONTELUKAST [Suspect]
     Active Substance: MONTELUKAST SODIUM
     Indication: ASTHMA
     Dosage: FREQUENCY: 1 EVERY 1 DAYS
     Route: 048
  2. OXAZEPAM. [Suspect]
     Active Substance: OXAZEPAM
     Indication: DEPRESSION
     Dosage: FREQUENCY: 1 EVERY 1 DAYS
     Route: 048
  3. COLECALCIFEROL [Suspect]
     Active Substance: CHOLECALCIFEROL
     Dosage: FREQUENCY: 1 EVERY 1 WEEKS
     Route: 048
  4. CITALOPRAM [Suspect]
     Active Substance: CITALOPRAM HYDROBROMIDE
     Indication: DEPRESSION
     Dosage: FREQUENCY: 1 EVERY 1 DAYS
     Route: 048
  5. SALBUTAMOL [Suspect]
     Active Substance: ALBUTEROL
     Indication: ASTHMA
     Dosage: FREQUENCY: 1 EVERY 1 DAYS, ROUTE OF ADMINISTRATION: INHALATION, FREQUENCY: AS REQUIRED
  6. CYANOCOBALAMIN. [Suspect]
     Active Substance: CYANOCOBALAMIN
     Dosage: FREQUENCY: 1 EVERY 1 DAYS
     Route: 048
  7. VYVANSE [Suspect]
     Active Substance: LISDEXAMFETAMINE DIMESYLATE
     Indication: DEPRESSION
     Dosage: FREQUENCY: 1 EVERY 1 DAYS
     Route: 048
  8. MATERNA [Suspect]
     Active Substance: MINERALS\VITAMINS
     Indication: PREGNANCY
     Dosage: FREQUENCY: 1 EVERY 1 DAYS
     Route: 048
  9. DOXYLAMINE/PYRIDOXINE [Suspect]
     Active Substance: DOXYLAMINE SUCCINATE\PYRIDOXINE HYDROCHLORIDE
     Indication: MORNING SICKNESS
     Dosage: FREQUENCY: 1 EVERY 1 DAYS
     Route: 048
  10. ESCITALOPRAM [Suspect]
     Active Substance: ESCITALOPRAM OXALATE
     Indication: DEPRESSION
     Dosage: FREQUENCY: 1 EVERY 1 DAYS
     Route: 048
  11. ACETYLSALICYLIC ACID [Suspect]
     Active Substance: ASPIRIN
     Indication: PREGNANCY
     Dosage: FREQUENCY: 1 EVERY 1 DAYS
     Route: 048

REACTIONS (1)
  - Fallot^s tetralogy [Unknown]
